FAERS Safety Report 22987751 (Version 5)
Quarter: 2024Q3

REPORT INFORMATION
  Report Type: Spontaneous
  Country: GB (occurrence: GB)
  Receive Date: 20230926
  Receipt Date: 20240812
  Transmission Date: 20241016
  Serious: Yes (Hospitalization, Other)
  Sender: VERTEX
  Company Number: GB-VERTEX PHARMACEUTICALS-2023-014208

PATIENT
  Sex: Female

DRUGS (3)
  1. ELEXACAFTOR\IVACAFTOR\TEZACAFTOR [Suspect]
     Active Substance: ELEXACAFTOR\IVACAFTOR\TEZACAFTOR
     Indication: Cystic fibrosis
     Dosage: 2 TABLETS IN THE MORNING (75 MG IVACAFTOR/ 50 MG TEZACAFTOR/ 100 MG ELEXACAFTOR)
     Route: 048
     Dates: start: 201908
  2. KALYDECO [Suspect]
     Active Substance: IVACAFTOR
     Indication: Cystic fibrosis
     Dosage: 1 TAB EVERY OTHER DAY
     Route: 048
     Dates: start: 201908
  3. KALYDECO [Suspect]
     Active Substance: IVACAFTOR
     Dosage: HALF TABLET ONCE IN EVENING
     Route: 048

REACTIONS (2)
  - Transplant [Unknown]
  - Idiopathic pneumonia syndrome [Unknown]

NARRATIVE: CASE EVENT DATE: 20230901
